FAERS Safety Report 9307034 (Version 1)
Quarter: 2013Q2

REPORT INFORMATION
  Report Type: Spontaneous
  Country: US (occurrence: US)
  Receive Date: 20130523
  Receipt Date: 20130523
  Transmission Date: 20140414
  Serious: No
  Sender: FDA-Public Use
  Company Number: US-B.I. PHARMACEUTICALS,INC./RIDGEFIELD-2013-BI-14289BP

PATIENT
  Age: 48 Year
  Sex: Male
  Weight: 156 kg

DRUGS (5)
  1. SPIRIVA [Suspect]
     Indication: BRONCHITIS CHRONIC
     Dosage: 18 MCG
     Route: 055
     Dates: start: 2011
  2. ALBUTEROL [Concomitant]
     Indication: BRONCHITIS CHRONIC
     Route: 055
  3. CYCLOBENZAPRINE [Concomitant]
     Indication: MUSCLE SPASMS
     Dosage: 20 MG
     Route: 048
  4. DICLOFENAC [Concomitant]
     Indication: ARTHRITIS
     Dosage: 150 MG
     Route: 048
  5. NEURONTIN [Concomitant]
     Indication: ARTHRITIS
     Dosage: 1800 MG
     Route: 048

REACTIONS (2)
  - Dyspnoea [Not Recovered/Not Resolved]
  - Intentional drug misuse [Not Recovered/Not Resolved]
